FAERS Safety Report 8882291 (Version 2)
Quarter: 2012Q4

REPORT INFORMATION
  Report Type: 
  Country: US (occurrence: US)
  Receive Date: 20121105
  Receipt Date: 20121210
  Transmission Date: 20130627
  Serious: Yes (Other)
  Sender: FDA-Public Use
  Company Number: US-AMGEN-USASP2012018770

PATIENT
  Age: 39 Year
  Sex: Female

DRUGS (15)
  1. ENBREL [Suspect]
     Indication: JUVENILE ARTHRITIS
     Dosage: 25 mg, 2 times/wk
     Route: 058
     Dates: start: 20090101
  2. PREDNISONE [Concomitant]
     Indication: JUVENILE ARTHRITIS
     Dosage: 20 mg, qd
     Route: 048
     Dates: start: 20120127, end: 20120228
  3. VOLTAREN                           /00372301/ [Concomitant]
     Indication: JUVENILE ARTHRITIS
     Dosage: 75 mg, bid
     Route: 048
     Dates: start: 20110105, end: 20120905
  4. CLARITIN ALLERGIC [Concomitant]
     Indication: HYPERSENSITIVITY
     Dosage: 10 mg, qd
     Route: 048
     Dates: start: 20120322
  5. FLUNASE                            /00456601/ [Concomitant]
     Indication: HYPERSENSITIVITY
     Dosage: UNK UNK, qd
     Dates: start: 20120403
  6. LANSOPRAZOLE ALMUS [Concomitant]
     Indication: DYSPEPSIA
     Dosage: 30 mg, qd
     Route: 048
     Dates: start: 20080101
  7. PRENATAL VITAMINS                  /01549301/ [Concomitant]
     Dosage: UNK UNK, qd
     Route: 048
     Dates: start: 20080101
  8. VALTREX [Concomitant]
     Indication: HERPES VIRUS INFECTION
     Dosage: 500 mg, qd
     Dates: start: 20080101
  9. RANITIDINE [Concomitant]
     Indication: DYSPEPSIA
     Dosage: 150 mg, prn
     Dates: start: 20080101
  10. FOLIC ACID [Concomitant]
     Dosage: 1 mg, daily
     Route: 048
     Dates: start: 20080101
  11. CALCIUM + VITAMIN D [Concomitant]
     Dosage: 500 UNK, bid
     Route: 048
     Dates: start: 20080101
  12. JUICE PLUS [Concomitant]
     Dosage: UNK UNK, daily
     Route: 048
     Dates: start: 20010101
  13. ZYRTEC [Concomitant]
     Dosage: UNK
  14. COLACE [Concomitant]
     Dosage: UNK UNK, qd
     Route: 048
  15. PREVACID [Concomitant]
     Dosage: 30 mg, qd
     Route: 048

REACTIONS (2)
  - Caesarean section [Unknown]
  - Arthritis [Unknown]
